FAERS Safety Report 5515936-8 (Version None)
Quarter: 2007Q4

REPORT INFORMATION
  Report Type: 
  Country: None (occurrence: None)
  Receive Date: 20071114
  Receipt Date: 20071112
  Transmission Date: 20080405
  Serious: Yes (Hospitalization)
  Sender: FDA-Public Use
  Company Number: PHNU2007DE03754

PATIENT
  Sex: Female

DRUGS (4)
  1. ABILIFY [Concomitant]
     Dosage: 15 MG/DAY
     Route: 048
     Dates: start: 20070605, end: 20070607
  2. ABILIFY [Concomitant]
     Dosage: 20 MG/DAY
     Route: 048
     Dates: start: 20070608
  3. TEGRETAL RETARD [Suspect]
     Indication: BIPOLAR DISORDER
     Dosage: 200 MG/DAY
     Route: 048
     Dates: start: 20070620, end: 20070620
  4. TEGRETAL RETARD [Suspect]
     Dosage: 400 MG/DAY
     Route: 048
     Dates: start: 20070621, end: 20070625

REACTIONS (1)
  - BUNDLE BRANCH BLOCK RIGHT [None]
